FAERS Safety Report 9313150 (Version 2)
Quarter: 2013Q4

REPORT INFORMATION
  Report Type: Spontaneous
  Country: US (occurrence: US)
  Receive Date: 20130528
  Receipt Date: 20131016
  Transmission Date: 20140711
  Serious: No
  Sender: FDA-Public Use
  Company Number: US-ASTRAZENECA-2013SE34895

PATIENT
  Age: 71 Year
  Sex: Female
  Weight: 65.8 kg

DRUGS (4)
  1. SYMBICORT [Suspect]
     Indication: CHRONIC OBSTRUCTIVE PULMONARY DISEASE
     Dosage: 160/4.5 ONE PUFF TWICE A DAY
     Route: 055
     Dates: start: 201304
  2. SYMBICORT [Suspect]
     Indication: CHRONIC OBSTRUCTIVE PULMONARY DISEASE
     Dosage: 160/4.5 TWO PUFFS TWICE A DAY
     Route: 055
     Dates: start: 201304
  3. WATER PILL [Concomitant]
  4. COMBIVENT [Concomitant]

REACTIONS (4)
  - Dyspnoea [Unknown]
  - Visual impairment [Unknown]
  - Off label use [Unknown]
  - Drug effect decreased [Unknown]
